FAERS Safety Report 8473519-4 (Version None)
Quarter: 2012Q2

REPORT INFORMATION
  Report Type: 
  Country: None (occurrence: None)
  Receive Date: 20120625
  Receipt Date: 20120625
  Transmission Date: 20120825
  Serious: No
  Sender: FDA-Public Use
  Company Number: None

PATIENT

DRUGS (1)
  1. CERTAVITE LIQUID SUPPLEMENT -MULTIPLE VITAMINS/MINERALS MAJOR PHARMACE [Suspect]

REACTIONS (2)
  - PRODUCT COLOUR ISSUE [None]
  - PRODUCT QUALITY ISSUE [None]
